FAERS Safety Report 10029982 (Version 2)
Quarter: 2014Q1

REPORT INFORMATION
  Report Type: Spontaneous
  Country: US (occurrence: US)
  Receive Date: 20140323
  Receipt Date: 20140323
  Transmission Date: 20141002
  Serious: No
  Sender: FDA-Public Use
  Company Number: US-ALLERGAN-1305623US

PATIENT
  Age: 51 Year
  Sex: Female

DRUGS (8)
  1. LATISSE 0.03% [Suspect]
     Indication: GROWTH OF EYELASHES
     Dosage: 1 GTT, UNK
     Route: 061
  2. TAXATEAR [Suspect]
     Indication: CHEMOTHERAPY
  3. CHEMOTHERAPY MEDICATION [Suspect]
     Indication: CHEMOTHERAPY
  4. HERCEPTIN [Suspect]
     Indication: BREAST CANCER
     Dosage: UNK
  5. PERJETA [Suspect]
     Indication: BREAST CANCER
  6. ATIVAN [Concomitant]
     Indication: ANXIETY
  7. AMBIEN [Concomitant]
     Indication: SLEEP DISORDER
  8. VISINE                             /00256502/ [Concomitant]
     Indication: OCULAR HYPERAEMIA

REACTIONS (8)
  - Inappropriate schedule of drug administration [Unknown]
  - Wrong technique in drug usage process [Unknown]
  - Drug administered at inappropriate site [Unknown]
  - Incorrect dose administered [Unknown]
  - Madarosis [Not Recovered/Not Resolved]
  - Madarosis [Not Recovered/Not Resolved]
  - Trichorrhexis [Not Recovered/Not Resolved]
  - Hair growth abnormal [Not Recovered/Not Resolved]
